FAERS Safety Report 9144057 (Version 1)
Quarter: 2013Q1

REPORT INFORMATION
  Report Type: Spontaneous
  Country: US (occurrence: US)
  Receive Date: 20130306
  Receipt Date: 20130306
  Transmission Date: 20140127
  Serious: No
  Sender: FDA-Public Use
  Company Number: US-PFIZER INC-2013077101

PATIENT
  Age: 75 Year
  Sex: Male
  Weight: 68.93 kg

DRUGS (2)
  1. LYRICA [Suspect]
     Indication: PROCEDURAL PAIN
     Dosage: 50 MG, 3X/DAY
     Route: 048
     Dates: start: 20130201
  2. PLAVIX [Concomitant]
     Indication: ANTICOAGULANT THERAPY
     Dosage: UNK

REACTIONS (2)
  - Off label use [Unknown]
  - Therapeutic response unexpected [Unknown]
